FAERS Safety Report 6112645-1 (Version None)
Quarter: 2009Q1

REPORT INFORMATION
  Report Type: 
  Country: None (occurrence: None)
  Receive Date: 20090312
  Receipt Date: 20090303
  Transmission Date: 20090719
  Serious: Yes (Other)
  Sender: FDA-Public Use
  Company Number: JP-BAYER-200910654BYL

PATIENT
  Age: 60 Year
  Sex: Female
  Weight: 48 kg

DRUGS (34)
  1. FLUDARA [Suspect]
     Indication: PRECURSOR T-LYMPHOBLASTIC LYMPHOMA/LEUKAEMIA STAGE IV
     Dosage: AS USED: 42 MG  UNIT DOSE: 50 MG
     Route: 042
     Dates: start: 20080922, end: 20080927
  2. BUSULFAN [Concomitant]
     Indication: ALLOGENIC BONE MARROW TRANSPLANTATION THERAPY
     Dosage: AS USED: 148 MG
     Route: 042
     Dates: start: 20080924, end: 20080925
  3. ZETBULIN [Concomitant]
     Indication: PRECURSOR T-LYMPHOBLASTIC LYMPHOMA/LEUKAEMIA STAGE IV
     Dosage: AS USED: 230 MG
     Route: 042
     Dates: start: 20080928, end: 20080928
  4. VALPROATE SODIUM [Concomitant]
     Dosage: AS USED: 600 MG
     Route: 048
     Dates: start: 20080922, end: 20080928
  5. CIPROXAN [Concomitant]
     Indication: INFECTION PROPHYLAXIS
     Dosage: AS USED: 600 MG
     Route: 048
     Dates: start: 20080922, end: 20081015
  6. DIFLUCAN [Concomitant]
     Indication: INFECTION PROPHYLAXIS
     Dosage: AS USED: 200 MG
     Route: 048
     Dates: start: 20080922, end: 20081105
  7. KYTRIL [Concomitant]
     Dosage: AS USED: 2 MG
     Route: 048
     Dates: start: 20080922, end: 20080927
  8. ZOVIRAX [Concomitant]
     Indication: INFECTION PROPHYLAXIS
     Route: 048
     Dates: start: 20080923
  9. PARIET [Concomitant]
     Dosage: AS USED: 10 MG
     Route: 048
     Dates: start: 20080922
  10. MAGNESIUM OXIDE [Concomitant]
     Dosage: AS USED: 1 G
     Route: 048
     Dates: start: 20080922
  11. MYSLEE [Concomitant]
     Dosage: AS USED: 5 MG
     Route: 048
     Dates: start: 20080922
  12. URSO 250 [Concomitant]
     Dosage: AS USED: 600 MG
     Route: 048
     Dates: start: 20080922
  13. PYRINAZIN [Concomitant]
     Dosage: AS USED: 0.5 G
     Route: 048
     Dates: start: 20081016, end: 20081229
  14. ALLELOCK [Concomitant]
     Dosage: AS USED: 5 MG
     Route: 048
     Dates: start: 20081025
  15. BAKTAR [Concomitant]
     Indication: INFECTION PROPHYLAXIS
     Dosage: TOTAL DAILY DOSE: 1 DF  UNIT DOSE: 1 DF
     Route: 048
     Dates: start: 20081030
  16. PROGRAF [Concomitant]
     Indication: PROPHYLAXIS AGAINST GRAFT VERSUS HOST DISEASE
     Route: 042
     Dates: start: 20080929, end: 20081017
  17. PROGRAF [Concomitant]
     Route: 048
     Dates: start: 20081018
  18. ITRIZOLE [Concomitant]
     Indication: INFECTION PROPHYLAXIS
     Dosage: AS USED: 200 MG
     Route: 048
     Dates: start: 20081106
  19. LAC B [Concomitant]
     Dosage: AS USED: 3 G
     Route: 048
     Dates: start: 20081220, end: 20081225
  20. ASPARA POTASSIUM [Concomitant]
     Dosage: AS USED: 900 MG
     Route: 048
     Dates: start: 20081222, end: 20090106
  21. SOLU-MEDROL [Concomitant]
     Dosage: AS USED: 92 MG
     Route: 042
     Dates: start: 20080928, end: 20080928
  22. MAXIPIME [Concomitant]
     Indication: INFECTION PROPHYLAXIS
     Dosage: AS USED: 2 G
     Route: 042
     Dates: start: 20081016, end: 20081029
  23. GRAN [Concomitant]
     Route: 058
     Dates: start: 20081006, end: 20081016
  24. METHOTREXATE [Concomitant]
     Indication: PROPHYLAXIS AGAINST GRAFT VERSUS HOST DISEASE
     Dosage: AS USED: 14 MG
     Route: 042
     Dates: start: 20081001, end: 20081001
  25. METHOTREXATE [Concomitant]
     Dosage: AS USED: 10 MG
     Route: 042
     Dates: start: 20081003, end: 20081006
  26. LEUCOVORIN CALCIUM [Concomitant]
     Indication: PROPHYLAXIS AGAINST GRAFT VERSUS HOST DISEASE
     Route: 042
     Dates: start: 20081002, end: 20081008
  27. TIENAM [Concomitant]
     Indication: INFECTION PROPHYLAXIS
     Dosage: AS USED: 1 G
     Route: 042
     Dates: start: 20081031, end: 20081103
  28. POLYGAM S/D [Concomitant]
     Indication: INFECTION PROPHYLAXIS
     Dosage: AS USED: 2.5 G
     Route: 042
     Dates: start: 20081218
  29. HUMULIN R [Concomitant]
     Dosage: AS USED: 100 IU
     Route: 058
     Dates: start: 20081101, end: 20081119
  30. ATARAX [Concomitant]
     Dosage: AS USED: 25 MG
     Route: 042
     Dates: start: 20081105, end: 20081105
  31. LEVEMIR [Concomitant]
     Route: 058
     Dates: start: 20081128
  32. NOVOLIN R [Concomitant]
     Dosage: AS USED: 12 IU
     Route: 058
     Dates: start: 20081128
  33. HUMAN RED BLOOD CELLS [Concomitant]
     Route: 042
     Dates: start: 20081017, end: 20081020
  34. PLATELETS [Concomitant]
     Route: 042
     Dates: start: 20081008, end: 20081020

REACTIONS (8)
  - ACUTE GRAFT VERSUS HOST DISEASE [None]
  - ALANINE AMINOTRANSFERASE INCREASED [None]
  - ASPARTATE AMINOTRANSFERASE INCREASED [None]
  - BLOOD ALKALINE PHOSPHATASE INCREASED [None]
  - BLOOD BILIRUBIN INCREASED [None]
  - CYTOMEGALOVIRUS VIRAEMIA [None]
  - GAMMA-GLUTAMYLTRANSFERASE INCREASED [None]
  - SEPSIS [None]
